FAERS Safety Report 9454362 (Version 1)
Quarter: 2013Q3

REPORT INFORMATION
  Report Type: Report from Study
  Country: AU (occurrence: AU)
  Receive Date: 20130812
  Receipt Date: 20130812
  Transmission Date: 20140515
  Serious: Yes (Hospitalization)
  Sender: FDA-Public Use
  Company Number: AU-BRISTOL-MYERS SQUIBB COMPANY-19173756

PATIENT
  Age: 40 Year
  Sex: Male

DRUGS (3)
  1. BYETTA [Suspect]
     Indication: TYPE 2 DIABETES MELLITUS
     Route: 058
     Dates: start: 20130531
  2. METFORMIN [Concomitant]
  3. MICARDIS [Concomitant]

REACTIONS (2)
  - Groin abscess [Recovering/Resolving]
  - Blood glucose fluctuation [Unknown]
